FAERS Safety Report 12754458 (Version 5)
Quarter: 2017Q2

REPORT INFORMATION
  Report Type: Report from Study
  Country: US (occurrence: US)
  Receive Date: 20160916
  Receipt Date: 20170627
  Transmission Date: 20170830
  Serious: Yes (Hospitalization, Other)
  Sender: FDA-Public Use
  Company Number: PHEH2016US023501

PATIENT
  Sex: Female

DRUGS (2)
  1. MYFORTIC [Suspect]
     Active Substance: MYCOPHENOLATE SODIUM
     Indication: RENAL TRANSPLANT
     Dosage: UNK
     Route: 065
  2. NEORAL [Suspect]
     Active Substance: CYCLOSPORINE
     Indication: RENAL TRANSPLANT
     Route: 065

REACTIONS (16)
  - Hypoaesthesia [Unknown]
  - Seizure [Unknown]
  - Joint swelling [Unknown]
  - Blood sodium decreased [Unknown]
  - Joint stiffness [Unknown]
  - Joint injury [Unknown]
  - Mobility decreased [Unknown]
  - Ligament sprain [Unknown]
  - Ankle fracture [Unknown]
  - Upper limb fracture [Unknown]
  - Joint range of motion decreased [Unknown]
  - Confusional state [Unknown]
  - Blood glucose decreased [Unknown]
  - Osteopenia [Unknown]
  - Brain oedema [Unknown]
  - Neuropathy peripheral [Unknown]
